FAERS Safety Report 6411664-5 (Version None)
Quarter: 2009Q4

REPORT INFORMATION
  Report Type: 
  Country: None (occurrence: None)
  Receive Date: 20091023
  Receipt Date: 20091013
  Transmission Date: 20100525
  Serious: Yes (Hospitalization, Other)
  Sender: FDA-Public Use
  Company Number: FR-ROCHE-662530

PATIENT
  Age: 64 Year
  Sex: Female

DRUGS (3)
  1. PEGASYS [Suspect]
     Route: 065
     Dates: start: 20080101
  2. PEGASYS [Suspect]
     Route: 065
     Dates: start: 20090101
  3. COPEGUS [Suspect]
     Route: 065

REACTIONS (5)
  - DEAFNESS [None]
  - DEPRESSION [None]
  - KETOACIDOSIS [None]
  - PANCYTOPENIA [None]
  - SUICIDAL IDEATION [None]
